FAERS Safety Report 6734520-1 (Version None)
Quarter: 2010Q2

REPORT INFORMATION
  Report Type: 
  Country: None (occurrence: None)
  Receive Date: 20100520
  Receipt Date: 20100514
  Transmission Date: 20101027
  Serious: Yes (Life-Threatening, Hospitalization)
  Sender: FDA-Public Use
  Company Number: US-GILEAD-2010-0028224

PATIENT
  Sex: Female

DRUGS (21)
  1. LETAIRIS [Suspect]
     Indication: PULMONARY ARTERIAL HYPERTENSION
     Route: 048
     Dates: start: 20090806
  2. ASPIRIN [Concomitant]
  3. LASIX [Concomitant]
  4. SPIRONOLACTONE [Concomitant]
  5. LISINOPRIL [Concomitant]
  6. METOPROLOL TARTRATE [Concomitant]
  7. IMDUR [Concomitant]
  8. NITROSTAT [Concomitant]
  9. DOCUSATE SODIUM [Concomitant]
  10. PATANOL [Concomitant]
  11. LIPITOR [Concomitant]
  12. LANTUS [Concomitant]
  13. FLONASE [Concomitant]
  14. MIRALAX [Concomitant]
  15. NEXIUM [Concomitant]
  16. RENAGEL [Concomitant]
  17. LEVOTHYROXINE SODIUM [Concomitant]
  18. ASCORBIC ACID [Concomitant]
  19. CALCITRIOL [Concomitant]
  20. FERROUS SULFATE TAB [Concomitant]
  21. POTASSIUM CHLORIDE [Concomitant]

REACTIONS (2)
  - HYPERKALAEMIA [None]
  - RENAL FAILURE ACUTE [None]
